FAERS Safety Report 7743597-6 (Version None)
Quarter: 2011Q3

REPORT INFORMATION
  Report Type: 
  Country: None (occurrence: None)
  Receive Date: 20110912
  Receipt Date: 20110829
  Transmission Date: 20111222
  Serious: No
  Sender: FDA-Public Use
  Company Number: US-B.I. PHARMACEUTICALS,INC./RIDGEFIELD-2011-BP-21029BP

PATIENT
  Age: 77 Year
  Sex: Male

DRUGS (6)
  1. NORVASC [Concomitant]
     Indication: HYPERTENSION
     Route: 048
  2. PLAVIX [Concomitant]
     Route: 048
     Dates: start: 20100101
  3. PRADAXA [Suspect]
     Indication: ATRIAL FIBRILLATION
     Dosage: 300 MG
     Route: 048
     Dates: start: 20110501
  4. HYDRALAZINE HCL [Concomitant]
     Indication: HYPERTENSION
     Route: 048
  5. POMEGRANATE SUPPLEMENT [Concomitant]
     Indication: PROSTATE CANCER
     Route: 048
  6. NORMODYNE [Concomitant]
     Indication: HYPERTENSION
     Route: 048

REACTIONS (3)
  - DYSPNOEA [None]
  - COUGH [None]
  - FATIGUE [None]
